FAERS Safety Report 5082487-7 (Version None)
Quarter: 2006Q3

REPORT INFORMATION
  Report Type: 
  Country: None (occurrence: None)
  Receive Date: 20060817
  Receipt Date: 20060814
  Transmission Date: 20061208
  Serious: Yes (Life-Threatening, Hospitalization)
  Sender: FDA-Public Use
  Company Number: PHBS2006NL12231

PATIENT
  Age: 86 Year
  Sex: Female
  Weight: 65 kg

DRUGS (8)
  1. LITHIUM [Concomitant]
     Dosage: 200 MG, QD
     Route: 065
     Dates: start: 20010824
  2. DIAZEPAM [Concomitant]
     Dosage: 1.25 MG, QD
     Route: 065
     Dates: start: 20060512
  3. MOVICOLON [Concomitant]
     Dosage: 1 DF, QD
     Route: 065
     Dates: start: 20050216
  4. LACTULOSE [Concomitant]
     Dosage: 30 MG, BID
     Route: 065
     Dates: start: 20040804
  5. LEPONEX [Suspect]
     Dosage: 100 MG, BID
     Route: 048
     Dates: start: 19991228
  6. ASCAL CARDIO [Concomitant]
     Dosage: 100 MG, QD
     Route: 065
     Dates: start: 20040709
  7. SUPRADYN [Concomitant]
     Dosage: 100 MG, QD
     Route: 065
     Dates: start: 20040709
  8. MULTIVITAMIN [Concomitant]
     Dosage: 1 DF, QD
     Route: 065
     Dates: start: 20040926

REACTIONS (6)
  - CHOLECYSTITIS [None]
  - ESCHERICHIA SEPSIS [None]
  - LEUKOCYTOSIS [None]
  - MALAISE [None]
  - PYREXIA [None]
  - SEPTIC SHOCK [None]
